FAERS Safety Report 6041606-6 (Version None)
Quarter: 2009Q1

REPORT INFORMATION
  Report Type: 
  Country: None (occurrence: None)
  Receive Date: 20090116
  Receipt Date: 20081027
  Transmission Date: 20090719
  Serious: No
  Sender: FDA-Public Use
  Company Number: US-BRISTOL-MYERS SQUIBB COMPANY-14383780

PATIENT
  Age: 66 Year
  Sex: Female
  Weight: 100 kg

DRUGS (9)
  1. ABILIFY [Suspect]
     Indication: BIPOLAR DISORDER
     Dosage: STARTED 4 YRS AGO.
  2. METFORMIN [Concomitant]
  3. SEROQUEL [Concomitant]
  4. WARFARIN SODIUM [Concomitant]
  5. SIMVASTATIN [Concomitant]
  6. LORATADINE [Concomitant]
  7. LASIX [Concomitant]
  8. POTASSIUM CHLORIDE [Concomitant]
  9. IMITREX [Concomitant]

REACTIONS (2)
  - ARTHRITIS [None]
  - DRUG INEFFECTIVE [None]
